FAERS Safety Report 9022205 (Version 3)
Quarter: 2013Q2

REPORT INFORMATION
  Report Type: Report from Study
  Country: US (occurrence: US)
  Receive Date: 20130118
  Receipt Date: 20130524
  Transmission Date: 20140414
  Serious: Yes (Life-Threatening, Hospitalization)
  Sender: FDA-Public Use
  Company Number: US-BRISTOL-MYERS SQUIBB COMPANY-17267956

PATIENT
  Age: 68 Year
  Sex: Male
  Weight: 81.63 kg

DRUGS (26)
  1. CARBOPLATIN [Suspect]
     Indication: NON-SMALL CELL LUNG CANCER
     Dosage: 1DF:AUC 6 ON DAY 3 OF EVERY 21DAY CYCLE (545)
     Route: 042
     Dates: start: 20121129, end: 20121129
  2. PACLITAXEL [Suspect]
     Indication: NON-SMALL CELL LUNG CANCER
     Route: 042
     Dates: start: 20121129, end: 20121129
  3. SIMVASTATIN [Concomitant]
     Indication: BLOOD CHOLESTEROL
     Dates: start: 2000
  4. DIGOXIN [Concomitant]
     Indication: CARDIAC FAILURE CONGESTIVE
     Dosage: 1DF:1TAB
     Dates: start: 2000
  5. METOPROLOL [Concomitant]
     Indication: HYPERTENSION
     Dates: start: 2000
  6. ALLOPURINOL [Concomitant]
     Indication: GOUT
     Dates: start: 2000
  7. AMIODARONE [Concomitant]
     Indication: ARRHYTHMIA
     Dates: start: 2000
  8. FOLIC ACID [Concomitant]
     Indication: GOUT
     Dates: start: 2000
  9. LISINOPRIL [Concomitant]
     Indication: HYPERTENSION
     Dates: start: 2000
  10. LEVOTHYROXINE [Concomitant]
     Indication: HYPOTHYROIDISM
     Dosage: 1DF:1TAB
     Dates: start: 2000
  11. FENOFIBRATE [Concomitant]
     Indication: BLOOD CHOLESTEROL
     Dates: start: 2000
  12. TIMOLOL [Concomitant]
     Indication: GLAUCOMA
     Dates: start: 2000
  13. BIMATOPROST [Concomitant]
     Indication: GLAUCOMA
     Dates: start: 2000
  14. FLUTICASONE [Concomitant]
     Indication: RHINITIS ALLERGIC
     Dosage: 1DF:1 SPRAY
     Dates: start: 2005
  15. TRAMADOL [Concomitant]
     Indication: PAIN
     Dates: start: 2010
  16. FISH OIL [Concomitant]
     Indication: VITAMIN SUPPLEMENTATION
     Dosage: 1DF:1TAB
     Dates: start: 2006
  17. TIOTROPIUM BROMIDE [Concomitant]
     Indication: CHRONIC OBSTRUCTIVE PULMONARY DISEASE
     Dosage: 1DF:1PUFF
     Dates: start: 2011
  18. DOCUSATE [Concomitant]
     Indication: CONSTIPATION
     Dosage: 1DF:2TABS
     Dates: start: 20121106
  19. POLYETHYLENE [Concomitant]
     Indication: CONSTIPATION
     Dates: start: 20121106
  20. PROCHLORPERAZINE [Concomitant]
     Indication: NAUSEA
     Dates: start: 20121106
  21. LORAZEPAM [Concomitant]
     Indication: NAUSEA
     Dates: start: 20121106
  22. MOMETASONE [Concomitant]
     Indication: RHINITIS ALLERGIC
     Dates: start: 20121114
  23. ZANTAC [Concomitant]
     Indication: PREMEDICATION
     Dates: start: 20121129, end: 20121129
  24. DECADRON [Concomitant]
     Indication: PREMEDICATION
     Dates: start: 20121129, end: 20121129
  25. BENADRYL [Concomitant]
     Indication: PREMEDICATION
     Dates: start: 20121129, end: 20121129
  26. PALONOSETRON [Concomitant]
     Indication: PREMEDICATION
     Dates: start: 20121129, end: 20121129

REACTIONS (7)
  - Hypotension [Unknown]
  - Dehydration [Unknown]
  - Neutropenia [Unknown]
  - Leukopenia [Unknown]
  - Lymphopenia [Unknown]
  - Sepsis [Recovered/Resolved]
  - Atrial fibrillation [Unknown]
